FAERS Safety Report 9912441 (Version 3)
Quarter: 2014Q4

REPORT INFORMATION
  Report Type: Spontaneous
  Country: FR (occurrence: FR)
  Receive Date: 20140220
  Receipt Date: 20141106
  Transmission Date: 20150529
  Serious: Yes (Hospitalization)
  Sender: FDA-Public Use
  Company Number: FR-BRISTOL-MYERS SQUIBB COMPANY-20215778

PATIENT
  Age: 54 Year
  Sex: Female

DRUGS (17)
  1. DOXYCYCLINE. [Suspect]
     Active Substance: DOXYCYCLINE
     Dosage: 100 MG FILM-COATED TABLET
     Route: 048
     Dates: start: 201312
  2. SMECTA [Suspect]
     Active Substance: MONTMORILLONITE
     Route: 048
     Dates: start: 201312
  3. HYDROXYZINE [Suspect]
     Active Substance: HYDROXYZINE\HYDROXYZINE HYDROCHLORIDE
     Dosage: SOLN FOR INJ
     Route: 042
     Dates: start: 201312
  4. ERBITUX [Suspect]
     Active Substance: CETUXIMAB
     Dosage: (355 MG,L IN 1 WK) DAILY DOSE:50.7143MG
     Route: 042
     Dates: start: 20131206
  5. TIORFAN [Suspect]
     Active Substance: RACECADOTRIL
     Route: 048
     Dates: start: 20140103
  6. NEFOPAM HCL [Suspect]
     Active Substance: NEFOPAM
     Dosage: 20MG/2 ML SOLN FOR INJ
     Route: 042
     Dates: start: 201312
  7. TOPALGIC [Suspect]
     Active Substance: TRAMADOL
     Dosage: 100 MG/2 ML SOLN FOR INJ
     Route: 042
     Dates: start: 20140103
  8. METOPIMAZINE [Suspect]
     Active Substance: METOPIMAZINE
     Dosage: ORAL FREEZE-DRIED POWDER(7.5MG) ORAL POWDER
     Route: 048
     Dates: start: 201312
  9. ONDANSETRON [Suspect]
     Active Substance: ONDANSETRON
     Dosage: 1DF:0.1429 DF
     Dates: start: 20131206
  10. OXYCODONE [Suspect]
     Active Substance: OXYCODONE
     Route: 042
     Dates: start: 201312
  11. CISPLATIN. [Suspect]
     Active Substance: CISPLATIN
     Dosage: 1DF:0.1429DF
     Route: 042
     Dates: start: 20131206
  12. PANTOPRAZOLE [Suspect]
     Active Substance: PANTOPRAZOLE SODIUM
     Dosage: 40MG, POWDER FOR SOLN FOR INJ
     Route: 042
     Dates: start: 201312
  13. METHYLPREDNISOLONE. [Suspect]
     Active Substance: METHYLPREDNISOLONE
     Dosage: 44MG,ONCE A WK
     Route: 042
     Dates: start: 20131206
  14. POLARAMINE [Suspect]
     Active Substance: DEXCHLORPHENIRAMINE MALEATE
     Dosage: 5MG/ML SOLN FOR INJ ONCE A WK
     Route: 042
     Dates: start: 20131206
  15. 5-FLUOROURACIL [Suspect]
     Active Substance: FLUOROURACIL
     Dosage: 1DF:0.1429
     Route: 042
     Dates: start: 20131206
  16. SPASFON [Suspect]
     Active Substance: PHLOROGLUCINOL
     Route: 042
     Dates: start: 201312
  17. APREPITANT. [Suspect]
     Active Substance: APREPITANT
     Dosage: 1DF:0.1429 DF
     Route: 048
     Dates: start: 20131206

REACTIONS (2)
  - Lipase increased [Recovered/Resolved]
  - Pancreatitis acute [Unknown]

NARRATIVE: CASE EVENT DATE: 20140103
